FAERS Safety Report 9311816 (Version 1)
Quarter: 2013Q2

REPORT INFORMATION
  Report Type: Report from Study
  Country: MX (occurrence: MX)
  Receive Date: 20130528
  Receipt Date: 20130528
  Transmission Date: 20140414
  Serious: Yes (Death)
  Sender: FDA-Public Use
  Company Number: PHHY2013MX052672

PATIENT
  Age: 75 Year
  Sex: Male

DRUGS (5)
  1. ONBREZ [Suspect]
     Indication: CHRONIC OBSTRUCTIVE PULMONARY DISEASE
     Dosage: 150 UG, BID
     Dates: start: 201302, end: 201303
  2. ONBREZ [Suspect]
     Indication: PULMONARY FIBROSIS
     Dosage: 150 UG, QD
     Dates: start: 201303
  3. ONBREZ [Suspect]
     Indication: OFF LABEL USE
  4. ENALAPRIL [Concomitant]
     Indication: HYPERTENSION
     Dosage: 1 DF, UNK
     Dates: start: 1993, end: 201303
  5. CHLORPROPAMIDE [Concomitant]
     Indication: DIABETES MELLITUS
     Dosage: 1 DF, UNK
     Dates: start: 2000, end: 201303

REACTIONS (7)
  - Pulmonary fibrosis [Fatal]
  - Chronic obstructive pulmonary disease [Fatal]
  - Disease progression [Fatal]
  - Feeling abnormal [Recovered/Resolved]
  - Somnolence [Recovered/Resolved]
  - Inappropriate schedule of drug administration [Unknown]
  - Dizziness [Recovered/Resolved]
